FAERS Safety Report 18847785 (Version 1)
Quarter: 2021Q1

REPORT INFORMATION
  Report Type: Spontaneous
  Country: CN (occurrence: CN)
  Receive Date: 20210204
  Receipt Date: 20210204
  Transmission Date: 20210419
  Serious: Yes (Hospitalization, Other)
  Sender: FDA-Public Use
  Company Number: CN-VIIV HEALTHCARE LIMITED-CN2021APC016308

PATIENT
  Age: 45 Year
  Sex: Male

DRUGS (6)
  1. ADEFOVIR DIPIVOXIL. [Suspect]
     Active Substance: ADEFOVIR DIPIVOXIL
     Indication: CHRONIC HEPATITIS B
     Dosage: 10 MG, QD
     Dates: start: 200707
  2. ADEFOVIR DIPIVOXIL. [Suspect]
     Active Substance: ADEFOVIR DIPIVOXIL
     Dosage: 100 UNK
  3. INTERFERON [Concomitant]
     Active Substance: INTERFERON
     Indication: CHRONIC HEPATITIS B
     Dosage: UNK
     Dates: start: 200901, end: 200909
  4. PEGYLATED INTERFERON ALFA 2A [Concomitant]
     Active Substance: PEGINTERFERON ALFA-2A
     Indication: CHRONIC HEPATITIS B
     Dosage: 180 UG, PER WEEK
     Dates: start: 201003, end: 201104
  5. TENOFOVIR DISOPROXIL FUMARATE. [Suspect]
     Active Substance: TENOFOVIR DISOPROXIL FUMARATE
     Indication: CHRONIC HEPATITIS B
     Dosage: 300 MG, QD
     Dates: start: 2016
  6. LAMIVUDINE. [Suspect]
     Active Substance: LAMIVUDINE
     Indication: CHRONIC HEPATITIS B
     Dosage: 100 MG, QD
     Dates: start: 200503

REACTIONS (13)
  - Pain [Recovered/Resolved]
  - Fanconi syndrome [Recovered/Resolved]
  - Pathogen resistance [Unknown]
  - Blood phosphorus decreased [Recovered/Resolved]
  - Osteoporosis [Recovered/Resolved]
  - Hepatic lesion [Recovered/Resolved]
  - Hypophosphataemic osteomalacia [Recovered/Resolved]
  - Fatigue [Recovered/Resolved]
  - Intermittent claudication [Recovered/Resolved]
  - Osteopenia [Recovered/Resolved]
  - Blood uric acid decreased [Recovered/Resolved]
  - Microalbuminuria [Recovered/Resolved]
  - Bone density increased [Recovered/Resolved]

NARRATIVE: CASE EVENT DATE: 201703
